FAERS Safety Report 4705568-3 (Version None)
Quarter: 2005Q2

REPORT INFORMATION
  Report Type: 
  Country: None (occurrence: None)
  Receive Date: 20050629
  Receipt Date: 20040819
  Transmission Date: 20051028
  Serious: Yes (Life-Threatening, Hospitalization)
  Sender: FDA-Public Use
  Company Number: 200413117FR

PATIENT
  Age: 53 Year
  Sex: Male
  Weight: 50 kg

DRUGS (7)
  1. HEPARIN [Suspect]
     Indication: ANGIOPLASTY
     Dosage: QD IVB
     Route: 040
     Dates: start: 20040813, end: 20040813
  2. INTEGRILIN [Suspect]
     Dosage: 7.9 ML/DAY IV
     Route: 042
  3. INTEGRILIN [Suspect]
     Dosage: 7ML/H /DAY IV
     Route: 042
     Dates: start: 20040218, end: 20040218
  4. RAMIPRIL [Concomitant]
  5. SECTRAL [Concomitant]
  6. ELISOR [Concomitant]
  7. OMEPRAZOLE [Concomitant]

REACTIONS (4)
  - MITRAL VALVE INCOMPETENCE [None]
  - MYOCARDIAL INFARCTION [None]
  - VENTRICULAR HYPERTROPHY [None]
  - VENTRICULAR TACHYCARDIA [None]
